FAERS Safety Report 7153617-8 (Version None)
Quarter: 2010Q4

REPORT INFORMATION
  Report Type: 
  Country: None (occurrence: None)
  Receive Date: 20101130
  Receipt Date: 20101125
  Transmission Date: 20110411
  Serious: Yes (Death)
  Sender: FDA-Public Use
  Company Number: 2010SP058767

PATIENT
  Age: 46 Year
  Sex: Female
  Weight: 49 kg

DRUGS (1)
  1. IMPLANON [Suspect]
     Indication: PRODUCT USED FOR UNKNOWN INDICATION
     Dosage: 1 DF;
     Dates: start: 20020301, end: 20071101

REACTIONS (6)
  - BREAST CANCER METASTATIC [None]
  - INCORRECT DRUG ADMINISTRATION DURATION [None]
  - LYMPHANGIOSIS CARCINOMATOSA [None]
  - METASTASES TO BONE [None]
  - METASTASES TO MUSCLE [None]
  - METASTASES TO PLEURA [None]
